FAERS Safety Report 14829731 (Version 2)
Quarter: 2018Q2

REPORT INFORMATION
  Report Type: Report from Study
  Country: DE (occurrence: DE)
  Receive Date: 20180430
  Receipt Date: 20180508
  Transmission Date: 20180711
  Serious: Yes (Death)
  Sender: FDA-Public Use
  Company Number: DE-CELGENEUS-DEU-20180405488

PATIENT
  Age: 69 Year
  Sex: Female

DRUGS (2)
  1. ABRAXANE [Suspect]
     Active Substance: PACLITAXEL
     Indication: BREAST CANCER
     Route: 041
     Dates: start: 20171222, end: 20180117
  2. L-THYROXIN [Concomitant]
     Active Substance: LEVOTHYROXINE SODIUM
     Indication: HYPOTHYROIDISM
     Route: 065

REACTIONS (1)
  - Breast cancer metastatic [Fatal]

NARRATIVE: CASE EVENT DATE: 20180303
